FAERS Safety Report 8357090-3 (Version None)
Quarter: 2012Q2

REPORT INFORMATION
  Report Type: 
  Country: None (occurrence: None)
  Receive Date: 20120514
  Receipt Date: 20120509
  Transmission Date: 20120825
  Serious: Yes (Death, Other)
  Sender: FDA-Public Use
  Company Number: VE-PFIZER INC-2012108739

PATIENT
  Age: 73 Year
  Sex: Male

DRUGS (3)
  1. LIPITOR [Suspect]
     Indication: HYPERCHOLESTEROLAEMIA
     Dosage: 40 MG, ONCE DAILY
     Route: 048
  2. ASPIRIN [Concomitant]
     Indication: ARTERIAL OCCLUSIVE DISEASE
     Dosage: 100 MG, ONCE DAILY
     Route: 048
  3. PLAVIX [Concomitant]
     Indication: ARTERIAL OCCLUSIVE DISEASE
     Dosage: 75 MG, ONCE DAILY
     Route: 048

REACTIONS (3)
  - MALIGNANT PERITONEAL NEOPLASM [None]
  - ORGAN FAILURE [None]
  - LUNG NEOPLASM MALIGNANT [None]
